FAERS Safety Report 15646010 (Version 2)
Quarter: 2018Q4

REPORT INFORMATION
  Report Type: Spontaneous
  Country: None (occurrence: SK)
  Receive Date: 20181121
  Receipt Date: 20181219
  Transmission Date: 20190205
  Serious: Yes (Other)
  Sender: FDA-Public Use
  Company Number: SK-BAXTER-2018BAX028071

PATIENT
  Sex: Female

DRUGS (3)
  1. ENDOXAN 1G PRASEK ZA RAZTOPINO ZA INFUNDIRANJE [Suspect]
     Active Substance: CYCLOPHOSPHAMIDE
     Indication: PLASMA CELL MYELOMA
     Dosage: CVD REGIMEN
     Route: 065
     Dates: start: 201501, end: 201511
  2. DEXAMETHASONE. [Suspect]
     Active Substance: DEXAMETHASONE
     Indication: PLASMA CELL MYELOMA
     Dosage: CVD REGIMEN
     Route: 065
     Dates: start: 201501, end: 201511
  3. BORTEZOMIB. [Suspect]
     Active Substance: BORTEZOMIB
     Indication: PLASMA CELL MYELOMA
     Dosage: CVD REGIMEN
     Route: 065
     Dates: start: 201501, end: 201511

REACTIONS (3)
  - Hyperproteinaemia [Unknown]
  - Anaemia [Unknown]
  - Disease recurrence [Unknown]
